FAERS Safety Report 4946065-X (Version None)
Quarter: 2006Q1

REPORT INFORMATION
  Report Type: 
  Country: None (occurrence: None)
  Receive Date: 20060118
  Receipt Date: 20051116
  Transmission Date: 20060701
  Serious: Yes (Death, Hospitalization)
  Sender: FDA-Public Use
  Company Number: REM_00174_2005

PATIENT
  Age: 31 Year
  Sex: Female
  Weight: 104 kg

DRUGS (12)
  1. REMODULIN [Suspect]
     Indication: PULMONARY HYPERTENSION
     Dosage: 12.8 NG/KG/MIN CONTINUOUS SC
     Route: 058
     Dates: start: 20050414, end: 20050401
  2. REMODULIN [Suspect]
     Indication: PULMONARY HYPERTENSION
     Dosage: 12.8 NG/KG/MIN CONTINUOUS SC
     Route: 058
     Dates: start: 20050502
  3. SILDENAFIL [Concomitant]
  4. VIAGRA [Concomitant]
  5. GLIPIZIDE [Concomitant]
  6. COLCHICINE [Concomitant]
  7. ALDACTONE [Concomitant]
  8. ZAROXOLYN [Concomitant]
  9. LASIX [Concomitant]
  10. DIGOXIN [Concomitant]
  11. COUMADIN [Concomitant]
  12. BENZONATATE [Concomitant]

REACTIONS (2)
  - PULMONARY HYPERTENSION [None]
  - VOMITING [None]
